FAERS Safety Report 20571112 (Version 6)
Quarter: 2023Q4

REPORT INFORMATION
  Report Type: Spontaneous
  Country: US (occurrence: US)
  Receive Date: 20220309
  Receipt Date: 20231020
  Transmission Date: 20240110
  Serious: No
  Sender: FDA-Public Use
  Company Number: US-PHARMAESSENTIA CORPORATION-US-2022-PEC-000496

PATIENT
  Sex: Female

DRUGS (17)
  1. BESREMI [Suspect]
     Active Substance: ROPEGINTERFERON ALFA-2B-NJFT
     Indication: Polycythaemia vera
     Dosage: 50 MICROGRAM, Q2W
     Route: 058
     Dates: start: 20220207
  2. BESREMI [Suspect]
     Active Substance: ROPEGINTERFERON ALFA-2B-NJFT
     Dosage: 100 MICROGRAM, Q2W
     Route: 058
  3. BESREMI [Suspect]
     Active Substance: ROPEGINTERFERON ALFA-2B-NJFT
     Dosage: 150 MICROGRAM, Q2W
     Route: 058
  4. BESREMI [Suspect]
     Active Substance: ROPEGINTERFERON ALFA-2B-NJFT
     Dosage: 150 MICROGRAM
     Route: 065
     Dates: start: 20230110
  5. BESREMI [Suspect]
     Active Substance: ROPEGINTERFERON ALFA-2B-NJFT
     Dosage: UNK
     Route: 065
  6. XARELTO [Concomitant]
     Active Substance: RIVAROXABAN
     Indication: Anticoagulant therapy
     Dosage: 20 MG, QD
     Route: 065
  7. ASPIRIN [Concomitant]
     Active Substance: ASPIRIN
     Indication: Anticoagulant therapy
     Dosage: 81 MG, QD
     Route: 065
  8. MAGNESIUM GLYCINATE [Concomitant]
     Active Substance: MAGNESIUM GLYCINATE
     Indication: Supplementation therapy
     Dosage: 400 MG, QD
     Route: 065
  9. CALCIUM [Concomitant]
     Active Substance: CALCIUM
     Indication: Supplementation therapy
     Dosage: 250 MG, QD
     Route: 065
  10. VITAMIN D3 [Concomitant]
     Active Substance: CHOLECALCIFEROL
     Indication: Supplementation therapy
     Dosage: 1000 IU INTERNATIONAL UNIT(S), QD
     Route: 065
  11. VITAMIN C [Concomitant]
     Active Substance: ASCORBIC ACID
     Indication: Supplementation therapy
     Dosage: 250 MG, TWICE A DAY
     Route: 065
  12. ZINC [Concomitant]
     Active Substance: ZINC
     Indication: Supplementation therapy
     Dosage: 100 MG, QD
     Route: 065
  13. BLACK CUMIN [Concomitant]
     Indication: Supplementation therapy
     Dosage: 1000 MCG, QD
     Route: 065
  14. ELDERBERRY [SAMBUCUS NIGRA FRUIT] [Concomitant]
     Indication: Supplementation therapy
     Dosage: 2 MILLILITER, QD
     Route: 065
  15. LEVOTHYROXINE [Concomitant]
     Active Substance: LEVOTHYROXINE
     Indication: Thyroid disorder
     Dosage: 75 MCG, QD
     Route: 065
  16. MELATONIN GUMMIES [Concomitant]
     Indication: Sleep disorder
     Dosage: 5 MG, ONCE AT NIGHT
     Route: 065
     Dates: start: 2021
  17. PROBIOTIC 4 [Concomitant]
     Indication: Supplementation therapy
     Dosage: UNK, QD
     Route: 065

REACTIONS (12)
  - Heart rate increased [Not Recovered/Not Resolved]
  - Condition aggravated [Not Recovered/Not Resolved]
  - Seborrhoeic dermatitis [Unknown]
  - Tinnitus [Not Recovered/Not Resolved]
  - Platelet count increased [Unknown]
  - Haematocrit increased [Recovering/Resolving]
  - Paraesthesia oral [Recovering/Resolving]
  - Drug hypersensitivity [Recovering/Resolving]
  - Dysuria [Not Recovered/Not Resolved]
  - Blood pressure increased [Recovered/Resolved]
  - Headache [Recovering/Resolving]
  - Injection site erythema [Recovering/Resolving]

NARRATIVE: CASE EVENT DATE: 20220208
